FAERS Safety Report 7334815-7 (Version None)
Quarter: 2011Q1

REPORT INFORMATION
  Report Type: 
  Country: None (occurrence: None)
  Receive Date: 20110307
  Receipt Date: 20110224
  Transmission Date: 20110831
  Serious: Yes (Hospitalization)
  Sender: FDA-Public Use
  Company Number: FR-JNJFOC-20110300179

PATIENT
  Age: 39 Year
  Sex: Female

DRUGS (4)
  1. PREMEDICATION [Concomitant]
  2. REMICADE [Suspect]
     Indication: COLITIS ULCERATIVE
     Dosage: 5TH INFUSION
     Route: 042
  3. REMICADE [Suspect]
     Route: 042
  4. REMICADE [Suspect]
     Route: 042

REACTIONS (8)
  - HEADACHE [None]
  - ARTHRALGIA [None]
  - MALAISE [None]
  - CHEST DISCOMFORT [None]
  - RASH GENERALISED [None]
  - COUGH [None]
  - INFUSION RELATED REACTION [None]
  - PYREXIA [None]
